FAERS Safety Report 7920516-0 (Version None)
Quarter: 2011Q4

REPORT INFORMATION
  Report Type: 
  Country: None (occurrence: None)
  Receive Date: 20111117
  Receipt Date: 20111110
  Transmission Date: 20120403
  Serious: Yes (Hospitalization, Other)
  Sender: FDA-Public Use
  Company Number: PHHY2011ZA099793

PATIENT
  Age: 79 Year
  Sex: Female

DRUGS (1)
  1. MIACALCIN [Suspect]
     Dosage: 200 IU, UNK
     Route: 045

REACTIONS (13)
  - JOINT INJURY [None]
  - BACK PAIN [None]
  - FATIGUE [None]
  - DRUG INEFFECTIVE [None]
  - SPINAL COLUMN INJURY [None]
  - EPISTAXIS [None]
  - FALL [None]
  - BONE DENSITY DECREASED [None]
  - CLAVICLE FRACTURE [None]
  - HYPOTENSION [None]
  - FACIAL BONES FRACTURE [None]
  - UPPER LIMB FRACTURE [None]
  - MUCOSAL INFECTION [None]
